FAERS Safety Report 22656005 (Version 1)
Quarter: 2023Q2

REPORT INFORMATION
  Report Type: Spontaneous
  Country: US (occurrence: US)
  Receive Date: 20230629
  Receipt Date: 20230629
  Transmission Date: 20230722
  Serious: No
  Sender: FDA-Public Use
  Company Number: US-FreseniusKabi-FK202307739

PATIENT
  Age: 36 Year
  Sex: Male

DRUGS (3)
  1. LIDOCAINE [Suspect]
     Active Substance: LIDOCAINE
     Indication: Biopsy penis
     Dosage: 25 ML INJECTED
     Dates: start: 20230510
  2. LIDOCAINE [Suspect]
     Active Substance: LIDOCAINE
     Indication: Biopsy penis
  3. SINGULAIR [Concomitant]
     Active Substance: MONTELUKAST SODIUM
     Indication: Allergy prophylaxis
     Dosage: PRN

REACTIONS (7)
  - Off label use [Recovered/Resolved]
  - Off label use [Recovered/Resolved]
  - Hypoaesthesia oral [Recovered/Resolved]
  - Paraesthesia oral [Recovered/Resolved]
  - Asthenia [Recovered/Resolved]
  - Malaise [Recovered/Resolved]
  - Dizziness [Recovered/Resolved]

NARRATIVE: CASE EVENT DATE: 20230510
